FAERS Safety Report 6941549-7 (Version None)
Quarter: 2010Q3

REPORT INFORMATION
  Report Type: 
  Country: None (occurrence: None)
  Receive Date: 20100825
  Receipt Date: 20100820
  Transmission Date: 20110219
  Serious: Yes (Life-Threatening, Hospitalization)
  Sender: FDA-Public Use
  Company Number: US-US-EMD SERONO, INC.-7015202

PATIENT
  Sex: Male

DRUGS (4)
  1. REBIF [Suspect]
     Indication: MULTIPLE SCLEROSIS
     Route: 058
     Dates: start: 20090801, end: 20100401
  2. PAXIL [Concomitant]
     Indication: DEPRESSION
     Dates: start: 20090901, end: 20100401
  3. NEURONTIN [Concomitant]
     Indication: PAIN
  4. IBUPROFEN [Concomitant]
     Indication: PAIN

REACTIONS (5)
  - ACCIDENTAL OVERDOSE [None]
  - CARDIAC ARREST [None]
  - COMA [None]
  - DEPRESSION [None]
  - INTENTIONAL OVERDOSE [None]
